FAERS Safety Report 4759904-2 (Version None)
Quarter: 2005Q3

REPORT INFORMATION
  Report Type: 
  Country: None (occurrence: None)
  Receive Date: 20050831
  Receipt Date: 20050817
  Transmission Date: 20060218
  Serious: Yes (Death, Hospitalization)
  Sender: FDA-Public Use
  Company Number: USA0506100524

PATIENT
  Age: 91 Year
  Sex: Female

DRUGS (11)
  1. EVISTA [Suspect]
     Indication: OSTEOPOROSIS
     Dosage: 60 MG DAY
     Dates: end: 20050609
  2. AMOXICILLIN [Concomitant]
  3. MIACALCIN [Concomitant]
  4. PREDNISONE TAB [Concomitant]
  5. ASPIRIN [Concomitant]
  6. CARDIZEM/00489701/(DILTIAZEM/00489701) [Concomitant]
  7. LANOXIN (DIGOXIN/00017701) [Concomitant]
  8. FOLIC ACID [Concomitant]
  9. NITROGLYCERIN [Concomitant]
  10. CALTRATE [Concomitant]
  11. RISPERDAL [Concomitant]

REACTIONS (5)
  - ASTHENIA [None]
  - CONFUSIONAL STATE [None]
  - PNEUMONIA ASPIRATION [None]
  - RESPIRATORY FAILURE [None]
  - TOOTH INFECTION [None]
